FAERS Safety Report 7429008-9 (Version None)
Quarter: 2011Q2

REPORT INFORMATION
  Report Type: 
  Country: None (occurrence: None)
  Receive Date: 20110421
  Receipt Date: 20110408
  Transmission Date: 20111010
  Serious: Yes (Other)
  Sender: FDA-Public Use
  Company Number: JP-BAYER-2011-018515

PATIENT
  Age: 80 Year
  Sex: Male
  Weight: 59 kg

DRUGS (6)
  1. KERATINAMIN [Concomitant]
     Indication: PROPHYLAXIS
     Dosage: UNK
     Route: 061
     Dates: start: 20110124
  2. ALINAMIN F [FURSULTIAMINE] [Concomitant]
     Dosage: DAILY DOSE 75 MG
     Route: 048
     Dates: start: 20100814
  3. URSO 250 [Concomitant]
     Dosage: DAILY DOSE 600 MG
     Route: 048
     Dates: start: 20100814
  4. LIVACT [Concomitant]
     Dosage: DAILY DOSE 12.45 MG
     Route: 048
     Dates: start: 20100816
  5. MUCOSOLVAN [Concomitant]
     Dosage: DAILY DOSE 45 MG
     Route: 048
     Dates: start: 20100814
  6. NEXAVAR [Suspect]
     Indication: HEPATIC NEOPLASM MALIGNANT
     Dosage: 200 MG, TID
     Route: 048
     Dates: start: 20110124, end: 20110224

REACTIONS (2)
  - HEPATIC FUNCTION ABNORMAL [None]
  - BLOOD PHOSPHORUS INCREASED [None]
